FAERS Safety Report 7989983-0 (Version None)
Quarter: 2011Q4

REPORT INFORMATION
  Report Type: 
  Country: None (occurrence: None)
  Receive Date: 20111219
  Receipt Date: 20110408
  Transmission Date: 20120403
  Serious: No
  Sender: FDA-Public Use
  Company Number: US-ASTRAZENECA-2010SE21213

PATIENT
  Age: 51 Year
  Sex: Male

DRUGS (6)
  1. ASPIRIN [Concomitant]
  2. CRESTOR [Suspect]
     Route: 048
  3. COREG [Concomitant]
  4. COUMADIN [Concomitant]
  5. PLAVIX [Concomitant]
  6. NIACIN [Concomitant]

REACTIONS (2)
  - BLOOD TRIGLYCERIDES ABNORMAL [None]
  - BLOOD CHOLESTEROL INCREASED [None]
